FAERS Safety Report 10682500 (Version 1)
Quarter: 2014Q4

REPORT INFORMATION
  Report Type: Spontaneous
  Country: FR (occurrence: None)
  Receive Date: 20141224
  Receipt Date: 20141224
  Transmission Date: 20150529
  Serious: Yes (Hospitalization)
  Sender: FDA-Public Use
  Company Number: FR-20140402

PATIENT
  Age: 46 Year
  Sex: Female

DRUGS (1)
  1. HEXABRIX [Suspect]
     Active Substance: IOXAGLATE MEGLUMINE\IOXAGLATE SODIUM
     Indication: ARTERIOGRAM CORONARY
     Route: 013
     Dates: start: 20141127, end: 20141127

REACTIONS (5)
  - Hypotension [None]
  - Rash erythematous [None]
  - Abdominal pain [None]
  - Respiratory tract irritation [None]
  - Diarrhoea [None]

NARRATIVE: CASE EVENT DATE: 20141127
